FAERS Safety Report 8543891-5 (Version None)
Quarter: 2012Q3

REPORT INFORMATION
  Report Type: 
  Country: None (occurrence: None)
  Receive Date: 20120727
  Receipt Date: 20120723
  Transmission Date: 20120928
  Serious: Yes (Hospitalization)
  Sender: FDA-Public Use
  Company Number: US-TEVA-350171USA

PATIENT
  Age: 57 Year
  Sex: Male

DRUGS (9)
  1. FERROUS SULFATE TAB [Concomitant]
     Route: 065
  2. SEVELAMER [Concomitant]
     Route: 065
  3. GABAPENTIN [Suspect]
     Dosage: 900 MG/DAY
     Route: 065
  4. LANTUS [Concomitant]
     Route: 065
  5. TAMSULOSIN HCL [Concomitant]
     Route: 065
  6. DILTIAZEM [Concomitant]
     Route: 065
  7. ASPIRIN [Concomitant]
     Route: 065
  8. LACTULOSE [Concomitant]
     Route: 065
  9. FINASTERIDE [Concomitant]
     Route: 065

REACTIONS (5)
  - TOXICITY TO VARIOUS AGENTS [None]
  - RENAL FAILURE [None]
  - MYOCLONUS [None]
  - ALTERED STATE OF CONSCIOUSNESS [None]
  - RENAL TUBULAR NECROSIS [None]
